FAERS Safety Report 5788352-1 (Version None)
Quarter: 2008Q2

REPORT INFORMATION
  Report Type: 
  Country: None (occurrence: None)
  Receive Date: 20080620
  Receipt Date: 20080609
  Transmission Date: 20081010
  Serious: Yes (Death)
  Sender: FDA-Public Use
  Company Number: 2008AL004535

PATIENT
  Age: 68 Year
  Sex: Male

DRUGS (1)
  1. DIGOXIN [Suspect]
     Indication: ATRIAL FIBRILLATION
     Dates: start: 19860101, end: 20070525

REACTIONS (3)
  - PALLOR [None]
  - PALPITATIONS [None]
  - RENAL FAILURE [None]
